FAERS Safety Report 6068302-3 (Version None)
Quarter: 2009Q1

REPORT INFORMATION
  Report Type: 
  Country: None (occurrence: None)
  Receive Date: 20090206
  Receipt Date: 20090202
  Transmission Date: 20090719
  Serious: Yes (Other)
  Sender: FDA-Public Use
  Company Number: PHEH2008US10403

PATIENT
  Sex: Female
  Weight: 56.689 kg

DRUGS (9)
  1. GLEEVEC [Suspect]
     Indication: CHRONIC MYELOID LEUKAEMIA
     Dosage: 400 MG, QD
     Route: 048
     Dates: start: 19990101
  2. GLEEVEC [Suspect]
     Dosage: 200 MG, QD
  3. GLEEVEC [Suspect]
     Dosage: 100 MG, QOD
     Route: 048
  4. PLENDIL [Concomitant]
     Dosage: 2.5 MG, QD
     Route: 048
  5. BENICAR [Concomitant]
     Dosage: 20 MG, QD
  6. TOPROL-XL [Concomitant]
     Dosage: 25 MG, QD
     Route: 048
  7. TRANXENE [Concomitant]
     Dosage: 7.5 MG, PRN
     Route: 048
  8. GALENIC /BENAZEPRIL/HYDROCHLOROTHIAZIDE/ [Concomitant]
     Indication: HYPERTENSION
     Dosage: 20/12.5 MG, QD
     Route: 048
  9. MECLIZINE [Concomitant]
     Dosage: 25 MG, TID
     Route: 048

REACTIONS (17)
  - CHEST DISCOMFORT [None]
  - CONTUSION [None]
  - DIARRHOEA [None]
  - DRY SKIN [None]
  - EYE PAIN [None]
  - FATIGUE [None]
  - GINGIVAL PAIN [None]
  - GLOSSODYNIA [None]
  - LIP PAIN [None]
  - NAIL DISCOLOURATION [None]
  - OCULAR HYPERAEMIA [None]
  - PAROSMIA [None]
  - PSYCHOTIC BEHAVIOUR [None]
  - RASH GENERALISED [None]
  - RASH MACULAR [None]
  - SKIN REACTION [None]
  - TOOTH EROSION [None]
